FAERS Safety Report 5868671-0 (Version None)
Quarter: 2008Q3

REPORT INFORMATION
  Report Type: 
  Country: None (occurrence: None)
  Receive Date: 20080903
  Receipt Date: 20080825
  Transmission Date: 20090109
  Serious: Yes (Other)
  Sender: FDA-Public Use
  Company Number: PHHY2008BE19098

PATIENT
  Age: 35 Year
  Sex: Male

DRUGS (1)
  1. SANDOSTATIN LAR [Suspect]
     Indication: DIARRHOEA
     Dosage: 30 MG, QMO
     Dates: start: 20080601

REACTIONS (2)
  - PRURITUS [None]
  - RASH [None]
